FAERS Safety Report 5173296-9 (Version None)
Quarter: 2006Q4

REPORT INFORMATION
  Report Type: 
  Country: None (occurrence: None)
  Receive Date: 20061214
  Receipt Date: 20061120
  Transmission Date: 20070319
  Serious: Yes (Death)
  Sender: FDA-Public Use
  Company Number: PHEH2006US14410

PATIENT
  Age: 60 Year
  Sex: Female
  Weight: 65.759 kg

DRUGS (1)
  1. EXJADE [Suspect]
     Indication: IRON OVERLOAD
     Dosage: 1500 MG, QD
     Route: 048
     Dates: start: 20060907

REACTIONS (2)
  - DEATH [None]
  - RASH [None]
